FAERS Safety Report 10720895 (Version 3)
Quarter: 2016Q1

REPORT INFORMATION
  Report Type: Spontaneous
  Country: US (occurrence: US)
  Receive Date: 20150119
  Receipt Date: 20160113
  Transmission Date: 20160525
  Serious: No
  Sender: FDA-Public Use
  Company Number: US-PFIZER INC-2015019290

PATIENT
  Age: 53 Year
  Sex: Female

DRUGS (13)
  1. KLONOPIN [Concomitant]
     Active Substance: CLONAZEPAM
     Dosage: UNK
  2. VITAMIN D3 [Concomitant]
     Active Substance: CHOLECALCIFEROL
     Dosage: UNK
  3. AMBIEN [Concomitant]
     Active Substance: ZOLPIDEM TARTRATE
     Dosage: UNK
  4. MAGNESIUM MALATE [Concomitant]
     Dosage: UNK
  5. URSODIOL. [Concomitant]
     Active Substance: URSODIOL
     Dosage: UNK
  6. LYRICA [Suspect]
     Active Substance: PREGABALIN
     Dosage: 200 MG, 3X/DAY (200MG 3X^S/DAY)
     Route: 048
     Dates: start: 201403
  7. PROTOPIC [Concomitant]
     Active Substance: TACROLIMUS
     Dosage: UNK
  8. NYSTATIN. [Concomitant]
     Active Substance: NYSTATIN
     Dosage: UNK
  9. VALIUM [Concomitant]
     Active Substance: DIAZEPAM
     Dosage: UNK
  10. CALCIUM [Concomitant]
     Active Substance: CALCIUM
     Dosage: UNK
  11. CELEXA [Concomitant]
     Active Substance: CITALOPRAM HYDROBROMIDE
     Dosage: UNK
  12. TRAMADOL. [Concomitant]
     Active Substance: TRAMADOL
     Dosage: UNK
  13. OMEGA 3 [Concomitant]
     Active Substance: OMEGA-3 FATTY ACIDS
     Dosage: UNK

REACTIONS (5)
  - Gastric disorder [Recovered/Resolved]
  - Oropharyngeal pain [Unknown]
  - Diarrhoea [Recovered/Resolved]
  - Drug withdrawal syndrome [Unknown]
  - Nausea [Recovered/Resolved]
